FAERS Safety Report 18629850 (Version 1)
Quarter: 2020Q4

REPORT INFORMATION
  Report Type: Report from Study
  Country: US (occurrence: US)
  Receive Date: 20201217
  Receipt Date: 20201217
  Transmission Date: 20210114
  Serious: Yes (Death, Life-Threatening, Hospitalization)
  Sender: FDA-Public Use
  Company Number: US-TEVA-2020-US-1859888

PATIENT
  Age: 68 Year
  Sex: Male
  Weight: 71 kg

DRUGS (7)
  1. VANCOMYCIN HCL [Suspect]
     Active Substance: VANCOMYCIN HYDROCHLORIDE
     Dosage: 1250 MG, Q12H, INTRAVENOUS
     Route: 042
     Dates: start: 20190206, end: 20190207
  2. VANCOMYCIN HCL [Suspect]
     Active Substance: VANCOMYCIN HYDROCHLORIDE
     Dosage: 1000 MG, Q8H, INTRAVENOUS
     Route: 042
     Dates: start: 20190129, end: 20190131
  3. CYTARABINE. [Suspect]
     Active Substance: CYTARABINE
     Indication: ACUTE MYELOID LEUKAEMIA
     Dosage: 184 MILLIGRAM DAILY;
     Route: 065
     Dates: start: 20190117, end: 20190123
  4. PF-04449913;PLACEBO [Suspect]
     Active Substance: GLASDEGIB
     Indication: ACUTE MYELOID LEUKAEMIA
     Route: 048
     Dates: start: 20190117, end: 20190204
  5. VANCOMYCIN HCL [Suspect]
     Active Substance: VANCOMYCIN HYDROCHLORIDE
     Indication: FEBRILE NEUTROPENIA
     Dosage: 1500 MG, Q8H, INTRAVENOUS
     Route: 042
     Dates: start: 20190204, end: 20190205
  6. DAUNORUBICIN [Suspect]
     Active Substance: DAUNORUBICIN
     Indication: ACUTE MYELOID LEUKAEMIA
     Dosage: 109.75 MILLIGRAM DAILY;
     Route: 065
     Dates: start: 20190117, end: 20190119
  7. VANCOMYCIN HCL [Suspect]
     Active Substance: VANCOMYCIN HYDROCHLORIDE
     Dosage: 1250 MG, Q8H, INTRAVENOUS
     Route: 042
     Dates: start: 20190201, end: 20190203

REACTIONS (4)
  - Pneumonia fungal [Not Recovered/Not Resolved]
  - Acute kidney injury [Not Recovered/Not Resolved]
  - Fungal sepsis [Fatal]
  - Respiratory failure [Fatal]

NARRATIVE: CASE EVENT DATE: 20190205
